FAERS Safety Report 9547025 (Version 2)
Quarter: 2013Q4

REPORT INFORMATION
  Report Type: Spontaneous
  Country: US (occurrence: None)
  Receive Date: 20130920
  Receipt Date: 20131015
  Transmission Date: 20140711
  Serious: Yes (Other)
  Sender: FDA-Public Use
  Company Number: CIO13054934

PATIENT
  Sex: Female

DRUGS (2)
  1. METAMUCIL [Suspect]
     Dosage: 1 TBSP, 1/DAY FOR 2 DAYS, ORAL?
     Route: 048
     Dates: start: 20130912, end: 20130913
  2. LISINOPRIL [Suspect]
     Route: 048

REACTIONS (4)
  - Hypersensitivity [None]
  - Speech disorder [None]
  - Dysphagia [None]
  - Drug hypersensitivity [None]
